FAERS Safety Report 4635241-1 (Version None)
Quarter: 2005Q2

REPORT INFORMATION
  Report Type: 
  Country: None (occurrence: None)
  Receive Date: 20050411
  Receipt Date: 20050406
  Transmission Date: 20051028
  Serious: Yes (Hospitalization, Other)
  Sender: FDA-Public Use
  Company Number: 200510905GDS

PATIENT
  Sex: Female

DRUGS (1)
  1. ASPIRIN [Suspect]
     Indication: CORONARY ARTERY DISEASE
     Dosage: 81 MG, TOTAL DAILY

REACTIONS (3)
  - GASTROINTESTINAL ULCER HAEMORRHAGE [None]
  - ILEAL STENOSIS [None]
  - IRON DEFICIENCY ANAEMIA [None]
